FAERS Safety Report 19717896 (Version 1)
Quarter: 2021Q3

REPORT INFORMATION
  Report Type: Report from Study
  Country: US (occurrence: US)
  Receive Date: 20210818
  Receipt Date: 20210818
  Transmission Date: 20211014
  Serious: Yes (Hospitalization, Other)
  Sender: FDA-Public Use
  Company Number: US-ROCHE-2890301

PATIENT
  Age: 72 Year
  Sex: Male
  Weight: 101.8 kg

DRUGS (2)
  1. OBINUTUZUMAB. [Suspect]
     Active Substance: OBINUTUZUMAB
     Indication: CHRONIC LYMPHOCYTIC LEUKAEMIA
     Dosage: SUBSEQUENT DOSES: 900 MG IV ON C1D2, 1000 MG IV ON C1D8 + C1D15, C2?6D1.?LAST DOSE ADMINISTERED DATE
     Route: 042
     Dates: start: 20210517
  2. IBRUTINIB [Suspect]
     Active Substance: IBRUTINIB
     Indication: CHRONIC LYMPHOCYTIC LEUKAEMIA
     Dosage: LAST ADMINISTERED DATE: 17/JUL/2021.
     Route: 048
     Dates: start: 20210517

REACTIONS (2)
  - Cerebrovascular accident [Not Recovered/Not Resolved]
  - Arthropod-borne disease [Not Recovered/Not Resolved]

NARRATIVE: CASE EVENT DATE: 20210628
